FAERS Safety Report 12717739 (Version 1)
Quarter: 2016Q3

REPORT INFORMATION
  Report Type: Spontaneous
  Country: FR (occurrence: FR)
  Receive Date: 20160906
  Receipt Date: 20160906
  Transmission Date: 20161109
  Serious: Yes (Other)
  Sender: FDA-Public Use
  Company Number: FR-SHIRE-FR201611632

PATIENT
  Age: 7 Year
  Sex: Male

DRUGS (2)
  1. ELAPRASE [Suspect]
     Active Substance: IDURSULFASE
     Indication: PRODUCT USED FOR UNKNOWN INDICATION
     Dosage: 12 MG (2 VIALS), (ALTERNATED WITH 18 MG (3 VIALS)), 1X/WEEK
     Route: 041
  2. ATARAX [Concomitant]
     Active Substance: HYDROXYZINE\HYDROXYZINE HYDROCHLORIDE
     Indication: PREMEDICATION
     Dosage: UNK UNK, 1X/WEEK
     Route: 065

REACTIONS (2)
  - Infusion related reaction [Unknown]
  - Seizure [Unknown]

NARRATIVE: CASE EVENT DATE: 2016
